FAERS Safety Report 9457834 (Version 1)
Quarter: 2013Q3

REPORT INFORMATION
  Report Type: Spontaneous
  Country: US (occurrence: US)
  Receive Date: 20130814
  Receipt Date: 20130814
  Transmission Date: 20140515
  Serious: Yes (Life-Threatening, Hospitalization, Other)
  Sender: FDA-Public Use
  Company Number: US-009507513-1308USA002735

PATIENT
  Age: 17 Year
  Sex: Female
  Weight: 81.9 kg

DRUGS (9)
  1. ISENTRESS [Suspect]
     Indication: HIV INFECTION
     Dosage: 400 MG, BID
     Route: 048
     Dates: start: 20080208, end: 20090114
  2. ISENTRESS [Suspect]
     Dosage: 400 MG, BID
     Route: 048
     Dates: end: 20100727
  3. VANCOMYCIN [Suspect]
     Indication: PYREXIA
     Dosage: UNK UNK, Q8H
     Route: 042
     Dates: end: 20100512
  4. CEFTAZIDIME [Suspect]
     Indication: PNEUMONIA
     Dosage: UNK UNK, Q8H
     Route: 042
     Dates: end: 20100515
  5. VALTREX [Suspect]
     Indication: PROPHYLAXIS
     Dosage: UNK UNK, BID
     Route: 048
     Dates: end: 20100512
  6. ENALAPRIL MALEATE [Suspect]
     Indication: CARDIOMYOPATHY
     Dosage: UNK UNK, BID
     Route: 048
     Dates: end: 20100512
  7. NORVIR [Suspect]
  8. PENTAMIDINE ISETHIONATE [Concomitant]
     Indication: ANTIFUNGAL PROPHYLAXIS
     Dosage: UNK UNK, QM
     Route: 042
     Dates: end: 20100701
  9. PENTAMIDINE ISETHIONATE [Concomitant]
     Dosage: UNK
     Route: 042
     Dates: start: 20100102, end: 20100107

REACTIONS (49)
  - Pancreatitis [Recovered/Resolved]
  - Metapneumovirus infection [Unknown]
  - Hypokalaemia [Unknown]
  - Tachycardia [Unknown]
  - Polydipsia [Unknown]
  - Electrocardiogram QT prolonged [Unknown]
  - Dyspnoea [Unknown]
  - Tachypnoea [Unknown]
  - Fungaemia [Recovered/Resolved]
  - Pleural effusion [Unknown]
  - Renal cyst [Unknown]
  - Rhinovirus infection [Unknown]
  - Respiratory rate increased [Unknown]
  - Lung disorder [Unknown]
  - Mental status changes [Unknown]
  - Deafness [Unknown]
  - Lethargy [Unknown]
  - Hyponatraemia [Unknown]
  - Nystagmus [Recovered/Resolved with Sequelae]
  - Oedema peripheral [Unknown]
  - Pyrexia [Unknown]
  - Dehydration [Unknown]
  - Tremor [Unknown]
  - Aphasia [Unknown]
  - Hepatic steatosis [Unknown]
  - Type 2 diabetes mellitus [Not Recovered/Not Resolved]
  - Polyuria [Unknown]
  - Rash pruritic [Recovered/Resolved]
  - Diabetic ketoacidosis [Recovered/Resolved]
  - Haemolytic anaemia [Not Recovered/Not Resolved]
  - Pneumonia [Recovered/Resolved with Sequelae]
  - Metabolic acidosis [Recovering/Resolving]
  - Treatment noncompliance [Unknown]
  - Pain in extremity [Unknown]
  - Pneumonia [Recovered/Resolved]
  - Pneumonia [Recovered/Resolved with Sequelae]
  - Pneumonia [Recovered/Resolved with Sequelae]
  - Pneumocystis jirovecii pneumonia [Recovered/Resolved]
  - Electrolyte imbalance [Unknown]
  - Blood albumin decreased [Unknown]
  - Herpes zoster [Recovered/Resolved with Sequelae]
  - Depression [Not Recovered/Not Resolved]
  - Blood glucose increased [Not Recovered/Not Resolved]
  - Herpes zoster [Recovered/Resolved with Sequelae]
  - Diarrhoea [Unknown]
  - Thrombocytopenia [Not Recovered/Not Resolved]
  - Suicidal ideation [Recovering/Resolving]
  - Anaemia [Unknown]
  - Renal failure acute [Not Recovered/Not Resolved]
